FAERS Safety Report 18778187 (Version 1)
Quarter: 2021Q1

REPORT INFORMATION
  Report Type: Spontaneous
  Country: CA (occurrence: CA)
  Receive Date: 20210123
  Receipt Date: 20210123
  Transmission Date: 20210419
  Serious: Yes (Other)
  Sender: FDA-Public Use
  Company Number: CA-ACCORD-203203

PATIENT
  Age: 1 Year
  Sex: Male

DRUGS (1)
  1. TACROLIMUS. [Suspect]
     Active Substance: TACROLIMUS
     Indication: LIVER TRANSPLANT

REACTIONS (5)
  - Drug resistance [Unknown]
  - Food allergy [Unknown]
  - Immune-mediated adverse reaction [Unknown]
  - Anaphylactic reaction [Unknown]
  - Transplantation associated food allergy [Unknown]
